FAERS Safety Report 10574873 (Version 1)
Quarter: 2014Q4

REPORT INFORMATION
  Report Type: Spontaneous
  Country: JP (occurrence: JP)
  Receive Date: 20141110
  Receipt Date: 20141110
  Transmission Date: 20150529
  Serious: Yes (Other)
  Sender: FDA-Public Use
  Company Number: JP-DSJP-DSJ-2014-127953

PATIENT

DRUGS (6)
  1. PNEUMOVAX NP [Suspect]
     Active Substance: PNEUMOCOCCAL VACCINE, POLYVALENT 23
     Indication: PROPHYLAXIS
     Dosage: 0.5 ML, QD
     Route: 058
     Dates: start: 20141009, end: 20141009
  2. NIVADIL [Suspect]
     Active Substance: NILVADIPINE
     Indication: HYPERTENSION
     Dosage: 4 MG, BID
     Route: 048
     Dates: start: 20071126
  3. MYONAL /00287502/ [Suspect]
     Active Substance: EPERISONE HYDROCHLORIDE
     Indication: MUSCULOSKELETAL STIFFNESS
     Dosage: 50 MG, BID
     Route: 048
     Dates: start: 20071126
  4. OLMETEC [Suspect]
     Active Substance: OLMESARTAN MEDOXOMIL
     Indication: HYPERTENSION
     Dosage: 20 MG, QD
     Route: 048
     Dates: start: 20050506
  5. DEPAS [Suspect]
     Active Substance: ETIZOLAM
     Indication: INSOMNIA
     Dosage: 0.5 MG, QD
     Route: 048
     Dates: start: 20080726
  6. OPALMON [Suspect]
     Active Substance: LIMAPROST
     Indication: LUMBAR SPINAL STENOSIS
     Dosage: 1 DF, TID
     Route: 048
     Dates: start: 20080726

REACTIONS (2)
  - Seizure [Recovered/Resolved]
  - Tremor [None]

NARRATIVE: CASE EVENT DATE: 20141009
